FAERS Safety Report 5259045-4 (Version None)
Quarter: 2007Q1

REPORT INFORMATION
  Report Type: 
  Country: None (occurrence: None)
  Receive Date: 20070308
  Receipt Date: 20070209
  Transmission Date: 20070707
  Serious: Yes (Hospitalization, Disabling, Other)
  Sender: FDA-Public Use
  Company Number: AR-BRISTOL-MYERS SQUIBB COMPANY-13705199

PATIENT
  Age: 61 Year
  Sex: Male

DRUGS (2)
  1. ERBITUX [Suspect]
     Indication: LARYNGEAL CANCER STAGE II
     Route: 042
     Dates: start: 20061121, end: 20061121
  2. RADIOTHERAPY [Suspect]
     Indication: LARYNGEAL CANCER STAGE II

REACTIONS (1)
  - PNEUMONIA ASPIRATION [None]
